FAERS Safety Report 5544002-0 (Version None)
Quarter: 2007Q4

REPORT INFORMATION
  Report Type: 
  Country: None (occurrence: None)
  Receive Date: 20071206
  Receipt Date: 20071120
  Transmission Date: 20080405
  Serious: Yes (Other)
  Sender: FDA-Public Use
  Company Number: URSO-2007-218

PATIENT

DRUGS (1)
  1. URSODIOL [Suspect]
     Indication: CHOLANGITIS SCLEROSING
     Dosage: 13-15 MG/KG/DAY

REACTIONS (3)
  - DISEASE PROGRESSION [None]
  - HEPATIC FAILURE [None]
  - LIVER TRANSPLANT [None]
